FAERS Safety Report 5760938-X (Version None)
Quarter: 2008Q2

REPORT INFORMATION
  Report Type: 
  Country: None (occurrence: None)
  Receive Date: 20080606
  Receipt Date: 20080528
  Transmission Date: 20081010
  Serious: Yes (Hospitalization)
  Sender: FDA-Public Use
  Company Number: NL-TEVA-172198ISR

PATIENT
  Sex: Male

DRUGS (2)
  1. TRAMADOL HCL [Suspect]
     Indication: PAIN
     Dosage: 2-6 TABLETS PER DAY
  2. COPAXONE [Suspect]
     Route: 058
     Dates: start: 20021206

REACTIONS (1)
  - ABASIA [None]
